FAERS Safety Report 6501916-2 (Version None)
Quarter: 2009Q4

REPORT INFORMATION
  Report Type: 
  Country: None (occurrence: None)
  Receive Date: 20091216
  Receipt Date: 20091211
  Transmission Date: 20100525
  Serious: Yes (Hospitalization)
  Sender: FDA-Public Use
  Company Number: PHHO2009GB10603

PATIENT
  Sex: Male
  Weight: 78 kg

DRUGS (2)
  1. AFINITOR [Suspect]
     Indication: METASTATIC RENAL CELL CARCINOMA
     Dosage: 10 MG
     Route: 048
     Dates: start: 20090623, end: 20090823
  2. AFINITOR [Suspect]
     Dosage: NO TREATMENT
     Dates: start: 20090824

REACTIONS (1)
  - DEEP VEIN THROMBOSIS [None]
